FAERS Safety Report 14193981 (Version 2)
Quarter: 2017Q4

REPORT INFORMATION
  Report Type: Spontaneous
  Country: US (occurrence: US)
  Receive Date: 20171116
  Receipt Date: 20171208
  Transmission Date: 20180321
  Serious: Yes (Other)
  Sender: FDA-Public Use
  Company Number: US-JNJFOC-20171104377

PATIENT
  Sex: Male

DRUGS (1)
  1. POLYSPORIN FIRST AID ANTIBIOTIC [Suspect]
     Active Substance: BACITRACIN\POLYMYXIN B SULFATE
     Indication: LACERATION
     Route: 065

REACTIONS (1)
  - Skin cancer [Unknown]
